FAERS Safety Report 12911211 (Version 1)
Quarter: 2016Q4

REPORT INFORMATION
  Report Type: Spontaneous
  Country: US (occurrence: US)
  Receive Date: 20161104
  Receipt Date: 20161104
  Transmission Date: 20170207
  Serious: No
  Sender: FDA-Public Use
  Company Number: US-PFIZER INC-2016511330

PATIENT
  Sex: Male

DRUGS (2)
  1. GLUTEN [Suspect]
     Active Substance: WHEAT GLUTEN
     Dosage: UNK
  2. CYTOMEL [Suspect]
     Active Substance: LIOTHYRONINE SODIUM
     Dosage: UNK

REACTIONS (2)
  - Reaction to drug excipients [Unknown]
  - Headache [Unknown]
